FAERS Safety Report 9023266 (Version 1)
Quarter: 2013Q1

REPORT INFORMATION
  Report Type: Spontaneous
  Country: US (occurrence: US)
  Receive Date: 20130120
  Receipt Date: 20130120
  Transmission Date: 20140127
  Serious: No
  Sender: FDA-Public Use
  Company Number: US-ALLERGAN-1213911US

PATIENT
  Sex: Female

DRUGS (1)
  1. BOTOX? [Suspect]
     Indication: MIGRAINE
     Dosage: 175 UNITS, SINGLE
     Dates: start: 20120920, end: 20120920

REACTIONS (4)
  - Asthenia [Not Recovered/Not Resolved]
  - Dysphagia [Not Recovered/Not Resolved]
  - Musculoskeletal pain [Not Recovered/Not Resolved]
  - Muscular weakness [Not Recovered/Not Resolved]
